FAERS Safety Report 7918959-4 (Version None)
Quarter: 2011Q4

REPORT INFORMATION
  Report Type: 
  Country: None (occurrence: None)
  Receive Date: 20111116
  Receipt Date: 20111107
  Transmission Date: 20120403
  Serious: Yes (Disabling)
  Sender: FDA-Public Use
  Company Number: CA-ASTRAZENECA-2011SE67106

PATIENT
  Age: 62 Year
  Sex: Male

DRUGS (1)
  1. CRESTOR [Suspect]
     Route: 048

REACTIONS (8)
  - GOUT [None]
  - DYSPEPSIA [None]
  - OEDEMA PERIPHERAL [None]
  - ARTHRALGIA [None]
  - ABDOMINAL PAIN UPPER [None]
  - ERYTHEMA [None]
  - MUSCLE SPASMS [None]
  - PAIN IN EXTREMITY [None]
